FAERS Safety Report 17018637 (Version 1)
Quarter: 2019Q4

REPORT INFORMATION
  Report Type: Other
  Country: DE (occurrence: DE)
  Receive Date: 20191111
  Receipt Date: 20191111
  Transmission Date: 20200122
  Serious: No
  Sender: FDA-Public Use
  Company Number: DE-LUPIN PHARMACEUTICALS INC.-2019-04914

PATIENT
  Sex: Female

DRUGS (1)
  1. TETRABENAZINE. [Suspect]
     Active Substance: TETRABENAZINE
     Indication: TARDIVE DYSKINESIA
     Dosage: UNK, INTAKE FOR ABOUT 10 YEARS
     Route: 065

REACTIONS (1)
  - Suffocation feeling [Recovered/Resolved]
